FAERS Safety Report 9248008 (Version 1)
Quarter: 2013Q2

REPORT INFORMATION
  Report Type: Spontaneous
  Country: US (occurrence: US)
  Receive Date: 20130423
  Receipt Date: 20130423
  Transmission Date: 20140414
  Serious: No
  Sender: FDA-Public Use
  Company Number: US-PFIZER INC-2013123400

PATIENT
  Sex: Female

DRUGS (3)
  1. LEVOXYL [Suspect]
     Dosage: UNK
  2. SYNTHROID [Suspect]
     Dosage: UNK
  3. CYTOMEL [Concomitant]
     Dosage: UNK

REACTIONS (6)
  - Product quality issue [Unknown]
  - Thyroid function test abnormal [Unknown]
  - Asthenia [Unknown]
  - Drug ineffective [Unknown]
  - Heart rate decreased [Unknown]
  - Abdominal distension [Unknown]
